FAERS Safety Report 25881180 (Version 1)
Quarter: 2025Q4

REPORT INFORMATION
  Report Type: Spontaneous
  Country: US (occurrence: US)
  Receive Date: 20251004
  Receipt Date: 20251004
  Transmission Date: 20260118
  Serious: Yes (Other)
  Sender: AMGEN
  Company Number: US-AMGEN-USASP2025189990

PATIENT
  Age: 34 Year
  Sex: Female

DRUGS (2)
  1. PREDNISONE [Suspect]
     Active Substance: PREDNISONE
     Indication: Lymphoedema
     Dosage: UNK
     Route: 048
  2. LIDOCAINE [Concomitant]
     Active Substance: LIDOCAINE
     Indication: Lymphoedema
     Dosage: UNK
     Route: 061

REACTIONS (3)
  - Lymphatic malformation [Recovering/Resolving]
  - Drug ineffective for unapproved indication [Unknown]
  - Off label use [Unknown]
